FAERS Safety Report 9818219 (Version 4)
Quarter: 2015Q1

REPORT INFORMATION
  Report Type: Spontaneous
  Country: US (occurrence: US)
  Receive Date: 20140115
  Receipt Date: 20150121
  Transmission Date: 20150721
  Serious: Yes (Death, Life-Threatening, Hospitalization, Disabling, Other)
  Sender: FDA-Public Use
  Company Number: US-009507513-1401USA004821

PATIENT
  Sex: Male
  Weight: 91.16 kg

DRUGS (3)
  1. JANUVIA [Suspect]
     Active Substance: SITAGLIPTIN PHOSPHATE
     Indication: TYPE 2 DIABETES MELLITUS
     Dosage: 50 MG, QD
     Route: 048
     Dates: start: 20071116, end: 20080926
  2. JANUVIA [Suspect]
     Active Substance: SITAGLIPTIN PHOSPHATE
     Dosage: 50 MG, QD
     Route: 048
     Dates: start: 20100331, end: 20101108
  3. JANUVIA [Suspect]
     Active Substance: SITAGLIPTIN PHOSPHATE
     Dosage: 100 MG, QD
     Route: 048
     Dates: start: 20071116, end: 20100420

REACTIONS (45)
  - Ileus [Unknown]
  - Nausea [Unknown]
  - Prostatomegaly [Unknown]
  - Therapeutic product ineffective [Unknown]
  - Pancytopenia [Unknown]
  - Orthostatic hypotension [Unknown]
  - Vision blurred [Unknown]
  - Gastrooesophageal reflux disease [Unknown]
  - Nephrolithiasis [Unknown]
  - Spondylitis [Unknown]
  - Jaundice cholestatic [Unknown]
  - Metastases to abdominal cavity [Unknown]
  - Bone marrow failure [Unknown]
  - Malnutrition [Unknown]
  - Impaired gastric emptying [Unknown]
  - Peripheral vascular disorder [Unknown]
  - Gastritis [Unknown]
  - Inguinal hernia [Unknown]
  - Blood triglycerides increased [Unknown]
  - Hypertension [Unknown]
  - Coronary arterial stent insertion [Unknown]
  - Weight decreased [Unknown]
  - Ulcer [Unknown]
  - Confusional state [Recovered/Resolved]
  - Arthritis [Not Recovered/Not Resolved]
  - Insulin-requiring type 2 diabetes mellitus [Unknown]
  - Liver scan abnormal [Unknown]
  - Ascites [Unknown]
  - Metastases to liver [Unknown]
  - Pyrexia [Unknown]
  - Back pain [Unknown]
  - Abdominal pain [Unknown]
  - Nephropathy [Unknown]
  - Pyrexia [Unknown]
  - Diarrhoea [Unknown]
  - Adenocarcinoma pancreas [Fatal]
  - Metastases to lymph nodes [Unknown]
  - Ascites [Unknown]
  - Dehydration [Unknown]
  - Vomiting [Unknown]
  - Hypercholesterolaemia [Unknown]
  - Coronary artery disease [Unknown]
  - Areflexia [Unknown]
  - Radiotherapy [Unknown]
  - Constipation [Not Recovered/Not Resolved]

NARRATIVE: CASE EVENT DATE: 2007
